FAERS Safety Report 9450920 (Version 3)
Quarter: 2013Q3

REPORT INFORMATION
  Report Type: Spontaneous
  Country: US (occurrence: US)
  Receive Date: 20130809
  Receipt Date: 20130918
  Transmission Date: 20140515
  Serious: Yes (Other)
  Sender: FDA-Public Use
  Company Number: US-AMGEN-USASP2013054371

PATIENT
  Age: 66 Year
  Sex: Male
  Weight: 81.63 kg

DRUGS (8)
  1. ENBREL [Suspect]
     Indication: PSORIASIS
     Dosage: 50 MG, 2 TIMES/WK
     Route: 058
     Dates: start: 20111205, end: 20130707
  2. PRILOSEC                           /00661201/ [Concomitant]
     Dosage: UNK
  3. ALBUTEROL                          /00139501/ [Concomitant]
     Dosage: UNK
  4. DILTIAZEM [Concomitant]
     Dosage: UNK
     Route: 048
  5. ULTRAVATE                          /00008504/ [Concomitant]
     Dosage: UNK
     Route: 061
  6. CLARITIN-D [Concomitant]
     Dosage: UNK
     Route: 048
  7. PAMELOR [Concomitant]
     Dosage: UNK
     Route: 048
  8. VITAMIN B [Concomitant]
     Dosage: UNK
     Route: 048

REACTIONS (1)
  - Hepatocellular carcinoma [Not Recovered/Not Resolved]
